FAERS Safety Report 18019158 (Version 1)
Quarter: 2020Q3

REPORT INFORMATION
  Report Type: Spontaneous
  Country: US (occurrence: US)
  Receive Date: 20200713
  Receipt Date: 20200713
  Transmission Date: 20201103
  Serious: Yes (Death)
  Sender: FDA-Public Use
  Company Number: None

PATIENT
  Age: 32 Year
  Sex: Male

DRUGS (1)
  1. SOFOSBUVIR/VELSPATASVIR 400/100MG [Suspect]
     Active Substance: SOFOSBUVIR\VELPATASVIR
     Indication: CHRONIC HEPATITIS
     Dosage: ?          OTHER DOSE:400/100MG;?
     Route: 048
     Dates: start: 20200506

REACTIONS (1)
  - Death [None]

NARRATIVE: CASE EVENT DATE: 202005
